FAERS Safety Report 10162231 (Version 1)
Quarter: 2014Q2

REPORT INFORMATION
  Report Type: Spontaneous
  Country: US (occurrence: US)
  Receive Date: 20140509
  Receipt Date: 20140509
  Transmission Date: 20141212
  Serious: Yes (Hospitalization)
  Sender: FDA-Public Use
  Company Number: US-DRREDDYS-USA/USA/14/0040147

PATIENT
  Age: 69 Year
  Sex: Male

DRUGS (7)
  1. AUGMENTIN 875 MG TABLETS [Suspect]
     Indication: ACUTE SINUSITIS
     Route: 048
     Dates: start: 20140124, end: 20140203
  2. BACTRIM [Suspect]
     Indication: ACUTE SINUSITIS
     Route: 065
     Dates: start: 20140217, end: 20140226
  3. METFORMIN HCL [Suspect]
     Indication: TYPE 2 DIABETES MELLITUS
     Route: 048
     Dates: start: 20100618, end: 20140228
  4. ATORVASTATIN [Concomitant]
     Indication: PRODUCT USED FOR UNKNOWN INDICATION
     Route: 065
     Dates: start: 20130906
  5. METOPROLOL SUCCINATE [Concomitant]
     Indication: PRODUCT USED FOR UNKNOWN INDICATION
     Route: 065
     Dates: start: 20120615
  6. CLOPIDOGREL BISULFATE [Concomitant]
     Indication: PRODUCT USED FOR UNKNOWN INDICATION
     Route: 065
     Dates: start: 20130805
  7. PREDNISONE [Concomitant]
     Indication: ACUTE SINUSITIS
     Dates: start: 20140217, end: 20140221

REACTIONS (2)
  - Renal failure acute [Recovered/Resolved]
  - Diarrhoea [Recovered/Resolved]
